FAERS Safety Report 7398127-8 (Version None)
Quarter: 2011Q2

REPORT INFORMATION
  Report Type: 
  Country: None (occurrence: None)
  Receive Date: 20110406
  Receipt Date: 20110329
  Transmission Date: 20111010
  Serious: Yes (Death, Hospitalization)
  Sender: FDA-Public Use
  Company Number: JP-ROCHE-710611

PATIENT
  Sex: Male
  Weight: 62 kg

DRUGS (2)
  1. ELPLAT [Concomitant]
     Indication: COLON CANCER
     Route: 041
     Dates: start: 20100323, end: 20100613
  2. XELODA [Suspect]
     Indication: RECTAL CANCER METASTATIC
     Dosage: IT IS ONE ADMINISTERING WEEKLY HOLIDAY MEDICINE FOR TWO WEEKS.
     Route: 048
     Dates: start: 20100323, end: 20100613

REACTIONS (4)
  - HYPERAMMONAEMIA [None]
  - MEMORY IMPAIRMENT [None]
  - MENTAL IMPAIRMENT [None]
  - HEPATIC FAILURE [None]
